FAERS Safety Report 21207266 (Version 1)
Quarter: 2022Q3

REPORT INFORMATION
  Report Type: Spontaneous
  Country: CH (occurrence: CH)
  Receive Date: 20220812
  Receipt Date: 20220812
  Transmission Date: 20221027
  Serious: Yes (Other)
  Sender: FDA-Public Use
  Company Number: CH-TEVA-2022-CH-2064964

PATIENT

DRUGS (3)
  1. LEUCOVORIN [Suspect]
     Active Substance: LEUCOVORIN
     Indication: Cholangiocarcinoma
     Route: 065
  2. FLUOROURACIL [Suspect]
     Active Substance: FLUOROURACIL
     Indication: Cholangiocarcinoma
     Route: 065
  3. IRINOTECAN [Suspect]
     Active Substance: IRINOTECAN
     Indication: Cholangiocarcinoma
     Route: 065

REACTIONS (1)
  - Cholangiocarcinoma [Unknown]
